FAERS Safety Report 21643870 (Version 1)
Quarter: 2022Q4

REPORT INFORMATION
  Report Type: Spontaneous
  Country: CN (occurrence: CN)
  Receive Date: 20221125
  Receipt Date: 20221125
  Transmission Date: 20230112
  Serious: Yes (Hospitalization, Other)
  Sender: FDA-Public Use
  Company Number: CN-009507513-2211CHN007805

PATIENT
  Age: 51 Year
  Sex: Male
  Weight: 60 kg

DRUGS (2)
  1. CILASTATIN SODIUM\IMIPENEM [Suspect]
     Active Substance: CILASTATIN SODIUM\IMIPENEM
     Indication: Anti-infective therapy
     Dosage: 1 GRAM, EVERY 12 HOURS (Q12H)
     Route: 041
     Dates: start: 20221112, end: 20221114
  2. SODIUM CHLORIDE [Concomitant]
     Active Substance: SODIUM CHLORIDE
     Indication: Medication dilution
     Dosage: 100 MILLILITER, EVERY 12 HOURS (Q12H)
     Route: 041
     Dates: start: 20221112, end: 20221114

REACTIONS (7)
  - Hallucination [Recovered/Resolved]
  - Disorganised speech [Recovered/Resolved]
  - Tremor [Recovered/Resolved]
  - Platelet count decreased [Not Recovered/Not Resolved]
  - Calculus urinary [Unknown]
  - Urinary tract infection [Unknown]
  - Neoplasm of appendix [Unknown]

NARRATIVE: CASE EVENT DATE: 20221101
